FAERS Safety Report 5735295-5 (Version None)
Quarter: 2008Q2

REPORT INFORMATION
  Report Type: 
  Country: None (occurrence: None)
  Receive Date: 20080505
  Receipt Date: 20080115
  Transmission Date: 20081010
  Serious: Yes (Other)
  Sender: FDA-Public Use
  Company Number: PHEH2008US00885

PATIENT
  Sex: Female

DRUGS (3)
  1. EXELON [Suspect]
     Dates: start: 20071221
  2. ARICEPT [Suspect]
  3. NAMENDA [Suspect]
     Dates: start: 20071221

REACTIONS (2)
  - CONFUSIONAL STATE [None]
  - NAUSEA [None]
